FAERS Safety Report 20605869 (Version 24)
Quarter: 2022Q4

REPORT INFORMATION
  Report Type: Other
  Country: GB (occurrence: GB)
  Receive Date: 20220317
  Receipt Date: 20221205
  Transmission Date: 20230112
  Serious: Yes (Disabling, Other)
  Sender: FDA-Public Use
  Company Number: None

PATIENT

DRUGS (31)
  1. SOLIFENACIN SUCCINATE [Interacting]
     Active Substance: SOLIFENACIN SUCCINATE
     Indication: Product used for unknown indication
     Dosage: UNK
     Route: 048
  2. SOLIFENACIN SUCCINATE [Interacting]
     Active Substance: SOLIFENACIN SUCCINATE
     Dosage: UNK
     Route: 048
  3. SOLIFENACIN SUCCINATE [Interacting]
     Active Substance: SOLIFENACIN SUCCINATE
     Dosage: UNK
     Route: 065
  4. OMEPRAZOLE [Interacting]
     Active Substance: OMEPRAZOLE
     Indication: Gastrooesophageal reflux disease
     Dosage: 20 MILLIGRAM
     Route: 048
     Dates: start: 20190118, end: 20190120
  5. OMEPRAZOLE [Interacting]
     Active Substance: OMEPRAZOLE
     Indication: Reflux laryngitis
     Dosage: 200 MILLIGRAM, QD
     Route: 048
  6. OMEPRAZOLE [Interacting]
     Active Substance: OMEPRAZOLE
     Dosage: UNK
     Route: 065
  7. OMEPRAZOLE [Interacting]
     Active Substance: OMEPRAZOLE
     Dosage: UNK
     Route: 065
  8. OMEPRAZOLE [Interacting]
     Active Substance: OMEPRAZOLE
     Dosage: 200 MILLIGRAM, QD
     Route: 065
  9. TRIMETHOPRIM [Interacting]
     Active Substance: TRIMETHOPRIM
     Indication: Urinary tract infection
     Dosage: 400 MILLIGRAM, OD
     Route: 048
     Dates: start: 20190118, end: 20190120
  10. TRIMETHOPRIM [Interacting]
     Active Substance: TRIMETHOPRIM
     Dosage: 200 MILLIGRAM, QD
     Route: 048
     Dates: start: 20190118, end: 20190120
  11. TRIMETHOPRIM [Interacting]
     Active Substance: TRIMETHOPRIM
     Dosage: 1200 MILLIGRAM, QD
     Route: 065
  12. TRIMETHOPRIM [Interacting]
     Active Substance: TRIMETHOPRIM
     Dosage: UNK
     Route: 048
  13. TRIMETHOPRIM [Interacting]
     Active Substance: TRIMETHOPRIM
     Dosage: UNK
     Route: 065
  14. TRIMETHOPRIM [Interacting]
     Active Substance: TRIMETHOPRIM
     Dosage: 1200 MILLIGRAM
     Route: 065
  15. TRIMETHOPRIM [Interacting]
     Active Substance: TRIMETHOPRIM
     Dosage: 400 MILLIGRAM, QD
     Route: 048
     Dates: start: 20190118, end: 20190120
  16. TRIMETHOPRIM [Interacting]
     Active Substance: TRIMETHOPRIM
     Dosage: 1200 MILLIGRAM
     Route: 048
  17. LANSOPRAZOLE [Interacting]
     Active Substance: LANSOPRAZOLE
     Indication: Product used for unknown indication
     Dosage: UNK
     Route: 065
  18. DOMPERIDONE [Interacting]
     Active Substance: DOMPERIDONE
     Indication: Product used for unknown indication
     Dosage: UNK
     Route: 048
  19. BECLOMETHASONE [Concomitant]
     Active Substance: BECLOMETHASONE
     Indication: Product used for unknown indication
     Dosage: UNK
     Route: 065
  20. BECLOMETHASONE [Concomitant]
     Active Substance: BECLOMETHASONE
     Dosage: UNK
     Route: 065
  21. DULOXETINE [Concomitant]
     Active Substance: DULOXETINE
     Indication: Product used for unknown indication
     Dosage: UNK
     Route: 065
  22. DULOXETINE [Concomitant]
     Active Substance: DULOXETINE
     Dosage: UNK
     Route: 065
  23. DULOXETINE [Concomitant]
     Active Substance: DULOXETINE
     Dosage: UNK
     Route: 065
  24. DULOXETINE [Concomitant]
     Active Substance: DULOXETINE
     Dosage: UNK
     Route: 065
  25. SOLIFENACIN [Concomitant]
     Active Substance: SOLIFENACIN
     Indication: Product used for unknown indication
     Dosage: UNK
     Route: 065
  26. SOLIFENACIN [Concomitant]
     Active Substance: SOLIFENACIN
     Dosage: UNK
     Route: 065
  27. SOLIFENACIN [Concomitant]
     Active Substance: SOLIFENACIN
     Dosage: UNK
     Route: 065
  28. SOLIFENACIN [Concomitant]
     Active Substance: SOLIFENACIN
     Dosage: UNK
     Route: 048
  29. TRIMETHOPRIM [Concomitant]
     Active Substance: TRIMETHOPRIM
     Indication: Urinary tract infection
     Dosage: UNK
     Route: 065
  30. TRIMETHOPRIM [Concomitant]
     Active Substance: TRIMETHOPRIM
     Dosage: UNK
     Route: 065
  31. BECLOMETHASONE [Concomitant]
     Active Substance: BECLOMETHASONE
     Indication: Product used for unknown indication
     Dosage: UNK
     Route: 065

REACTIONS (21)
  - Irritable bowel syndrome [Unknown]
  - Blood sodium decreased [Unknown]
  - Peripheral swelling [Unknown]
  - Blood potassium decreased [Unknown]
  - Diarrhoea [Recovered/Resolved]
  - Mucosal inflammation [Recovered/Resolved]
  - Drug interaction [Unknown]
  - Genital pain [Recovered/Resolved]
  - Genital ulceration [Recovered/Resolved]
  - Oral pain [Recovering/Resolving]
  - Condition aggravated [Unknown]
  - Food poisoning [Not Recovered/Not Resolved]
  - Contusion [Not Recovered/Not Resolved]
  - Illness [Recovering/Resolving]
  - Nightmare [Not Recovered/Not Resolved]
  - Feeling abnormal [Unknown]
  - Malaise [Unknown]
  - Abdominal pain upper [Recovering/Resolving]
  - Abdominal pain [Recovered/Resolved]
  - Gastrointestinal pain [Not Recovered/Not Resolved]
  - Vomiting [Unknown]

NARRATIVE: CASE EVENT DATE: 20190121
